FAERS Safety Report 23727339 (Version 1)
Quarter: 2024Q2

REPORT INFORMATION
  Report Type: Spontaneous
  Country: CL (occurrence: CL)
  Receive Date: 20240410
  Receipt Date: 20240410
  Transmission Date: 20240715
  Serious: Yes (Life-Threatening, Hospitalization, Other)
  Sender: FDA-Public Use
  Company Number: CL-AMGEN-CHLSP2024070543

PATIENT
  Age: 5 Year
  Sex: Female
  Weight: 19.7 kg

DRUGS (12)
  1. BLINCYTO [Suspect]
     Active Substance: BLINATUMOMAB
     Indication: B precursor type acute leukaemia
     Dosage: 11.5 MICROGRAM, QD, CONTINUOUS INFUSION
     Route: 042
     Dates: start: 20240314, end: 20240316
  2. SULFAMETHOXAZOLE\TRIMETHOPRIM [Concomitant]
     Active Substance: SULFAMETHOXAZOLE\TRIMETHOPRIM
     Indication: Prophylaxis
     Dosage: 200+40 MG, BID
     Route: 048
     Dates: start: 20240114
  3. DEXAMETHASONE [Concomitant]
     Active Substance: DEXAMETHASONE
     Dosage: 4 MILLIGRAM, QD
     Route: 042
     Dates: start: 20240314, end: 20240317
  4. DEXAMETHASONE [Concomitant]
     Active Substance: DEXAMETHASONE
     Dosage: UNK, DOSE WAS INCREASED
     Dates: start: 202403
  5. FLUTICASONE [Concomitant]
     Active Substance: FLUTICASONE
     Indication: Asthma
     Dosage: 125 MICROGRAM, BID
     Dates: start: 20240223
  6. GABAPENTIN [Concomitant]
     Active Substance: GABAPENTIN
     Indication: Neuralgia
     Dosage: 100 MILLIGRAM, BID
     Route: 048
     Dates: start: 20240223
  7. LEVOFLOXACIN [Concomitant]
     Active Substance: LEVOFLOXACIN
     Indication: Soft tissue infection
     Dosage: 200 MILLIGRAM, QD
     Route: 048
     Dates: start: 20240307, end: 20240325
  8. MELATONIN [Concomitant]
     Active Substance: MELATONIN
     Indication: Insomnia
     Dosage: 3 MILLIGRAM, QD
     Route: 048
     Dates: start: 20240101
  9. SERTRALINE [Concomitant]
     Active Substance: SERTRALINE HYDROCHLORIDE
     Indication: Depression
     Dosage: 12.5 MILLIGRAM, QD
     Route: 048
     Dates: start: 20230323
  10. VORICONAZOLE [Concomitant]
     Active Substance: VORICONAZOLE
     Indication: Fungal infection
     Dosage: 100 MILLIGRAM, TID
     Route: 042
     Dates: start: 20240221
  11. LEVETIRACETAM [Concomitant]
     Active Substance: LEVETIRACETAM
     Indication: Prophylaxis
     Dosage: 400 MILLIGRAM, BID
     Route: 048
     Dates: start: 20240313
  12. LEVETIRACETAM [Concomitant]
     Active Substance: LEVETIRACETAM
     Dosage: 50 MILLIGRAM/KILOGRAM
     Dates: start: 202403

REACTIONS (2)
  - Immune effector cell-associated neurotoxicity syndrome [Unknown]
  - Pyrexia [Recovered/Resolved]

NARRATIVE: CASE EVENT DATE: 20240314
